FAERS Safety Report 10621993 (Version 1)
Quarter: 2014Q4

REPORT INFORMATION
  Report Type: Spontaneous
  Country: DE (occurrence: None)
  Receive Date: 20141201
  Receipt Date: 20141201
  Transmission Date: 20150529
  Serious: Yes (Other)
  Sender: FDA-Public Use
  Company Number: None

PATIENT
  Age: 21 Year
  Sex: Female
  Weight: 71 kg

DRUGS (1)
  1. XARELTO [Suspect]
     Active Substance: RIVAROXABAN
     Indication: INTRACRANIAL VENOUS SINUS THROMBOSIS
     Dosage: 1 PILL ONCE DAILY TAKEN BY MOUTH
     Dates: start: 20130304, end: 20130623

REACTIONS (11)
  - Fluid retention [None]
  - Heart rate increased [None]
  - Gastrointestinal disorder [None]
  - Hyperhidrosis [None]
  - Dyspnoea [None]
  - Hypothyroidism [None]
  - Infectious mononucleosis [None]
  - Vitamin B12 deficiency [None]
  - Weight increased [None]
  - Malaise [None]
  - Vitamin D deficiency [None]

NARRATIVE: CASE EVENT DATE: 20130304
